FAERS Safety Report 6056398-4 (Version None)
Quarter: 2009Q1

REPORT INFORMATION
  Report Type: 
  Country: None (occurrence: None)
  Receive Date: 20090129
  Receipt Date: 20090123
  Transmission Date: 20090719
  Serious: Yes (Hospitalization)
  Sender: FDA-Public Use
  Company Number: US-BAYER-200836434NA

PATIENT
  Age: 41 Year
  Sex: Female
  Weight: 71 kg

DRUGS (1)
  1. YASMIN [Suspect]
     Indication: CONTRACEPTION
     Route: 048

REACTIONS (1)
  - PULMONARY EMBOLISM [None]
